FAERS Safety Report 17479177 (Version 1)
Quarter: 2020Q1

REPORT INFORMATION
  Report Type: Report from Study
  Country: US (occurrence: US)
  Receive Date: 20200228
  Receipt Date: 20200228
  Transmission Date: 20200409
  Serious: Yes (Hospitalization, Other)
  Sender: FDA-Public Use
  Company Number: US-JNJFOC-20190636931

PATIENT
  Sex: Female

DRUGS (2)
  1. STELARA [Suspect]
     Active Substance: USTEKINUMAB
     Indication: CROHN^S DISEASE
     Route: 058
     Dates: start: 20190201
  2. STELARA [Suspect]
     Active Substance: USTEKINUMAB
     Route: 058
     Dates: start: 20190102

REACTIONS (8)
  - Drug ineffective [Unknown]
  - Urinary tract infection [Not Recovered/Not Resolved]
  - Crohn^s disease [Unknown]
  - Pancreatitis [Unknown]
  - Incision site discharge [Unknown]
  - Blood glucose increased [Not Recovered/Not Resolved]
  - Cholelithiasis [Unknown]
  - Post procedural fistula [Not Recovered/Not Resolved]

NARRATIVE: CASE EVENT DATE: 20190614
